FAERS Safety Report 21102493 (Version 3)
Quarter: 2022Q3

REPORT INFORMATION
  Report Type: Report from Study
  Country: FR (occurrence: FR)
  Receive Date: 20220719
  Receipt Date: 20220831
  Transmission Date: 20221027
  Serious: Yes (Death, Life-Threatening, Other)
  Sender: FDA-Public Use
  Company Number: FR-GILEAD-2022-0588338

PATIENT
  Sex: Female

DRUGS (11)
  1. SACITUZUMAB GOVITECAN [Suspect]
     Active Substance: SACITUZUMAB GOVITECAN
     Indication: Transitional cell carcinoma
     Dosage: 10 MG/KG D1 AND D8 EVERY 21 DAYS
     Route: 042
     Dates: start: 20220627, end: 20220627
  2. OXYCODONE [Concomitant]
     Active Substance: OXYCODONE
     Indication: Abdominal pain
     Dosage: UNK
     Dates: start: 20220620
  3. OXYCODONE [Concomitant]
     Active Substance: OXYCODONE
     Indication: Pain
  4. SOLU-MEDROL [Concomitant]
     Active Substance: METHYLPREDNISOLONE SODIUM SUCCINATE
     Indication: Abdominal pain
     Dosage: UNK
     Dates: start: 20220620
  5. AMITRIPTYLINE HYDROCHLORIDE [Concomitant]
     Active Substance: AMITRIPTYLINE HYDROCHLORIDE
     Indication: Prophylaxis
     Dosage: UNK
     Dates: start: 20220620
  6. LOVENOX [Concomitant]
     Active Substance: ENOXAPARIN SODIUM
     Indication: Prophylaxis
     Dosage: UNK
     Dates: start: 20220608
  7. POLYETHYLENE GLYCOLS [Concomitant]
     Active Substance: POLYETHYLENE GLYCOLS
     Indication: Prophylaxis
     Dosage: UNK
     Dates: start: 20220608
  8. FILGRASTIM [Concomitant]
     Active Substance: FILGRASTIM
     Indication: Prophylaxis
     Dosage: UNK
     Dates: start: 20220627
  9. PRIMPERAN [Concomitant]
     Active Substance: METOCLOPRAMIDE HYDROCHLORIDE
     Indication: Prophylaxis
     Dosage: UNK
     Dates: start: 20220613
  10. PHLOROGLUCINOL [Concomitant]
     Active Substance: PHLOROGLUCINOL
     Indication: Abdominal pain
     Dosage: UNK
     Dates: start: 20220608
  11. FOLIC ACID [Concomitant]
     Active Substance: FOLIC ACID
     Indication: Prophylaxis
     Dosage: UNK
     Dates: start: 20220609

REACTIONS (2)
  - Hepatobiliary disease [Fatal]
  - Thrombocytopenia [Not Recovered/Not Resolved]

NARRATIVE: CASE EVENT DATE: 20220703
